FAERS Safety Report 18798665 (Version 1)
Quarter: 2021Q1

REPORT INFORMATION
  Report Type: Spontaneous
  Country: US (occurrence: US)
  Receive Date: 20210128
  Receipt Date: 20210128
  Transmission Date: 20210419
  Serious: No
  Sender: FDA-Public Use
  Company Number: US-TELIGENT, INC-20201000056

PATIENT
  Sex: Female
  Weight: 32.3 kg

DRUGS (2)
  1. CLOBETASOL PROPIONATE. [Suspect]
     Active Substance: CLOBETASOL PROPIONATE
     Indication: VULVOVAGINAL SWELLING
     Dosage: SEVERAL TIMES A WEEK
     Route: 061
     Dates: start: 202004, end: 20201021
  2. ATENOLOL. [Concomitant]
     Active Substance: ATENOLOL
     Indication: BLOOD PRESSURE MEASUREMENT

REACTIONS (11)
  - Vulvovaginal swelling [Recovering/Resolving]
  - Incorrect product administration duration [Unknown]
  - Vulvovaginal erythema [Recovering/Resolving]
  - Skin exfoliation [Recovering/Resolving]
  - Application site exfoliation [Recovering/Resolving]
  - Tenderness [Unknown]
  - Vulvovaginal burning sensation [Recovering/Resolving]
  - Gait inability [Recovering/Resolving]
  - Nipple pain [Recovering/Resolving]
  - Application site dryness [Recovering/Resolving]
  - Breast swelling [Recovered/Resolved]

NARRATIVE: CASE EVENT DATE: 2020
